FAERS Safety Report 15409871 (Version 1)
Quarter: 2018Q3

REPORT INFORMATION
  Report Type: Report from Study
  Country: None (occurrence: ES)
  Receive Date: 20180920
  Receipt Date: 20180920
  Transmission Date: 20181010
  Serious: Yes (Hospitalization)
  Sender: FDA-Public Use
  Company Number: ES-BIOVERATIV-2018BV000637

PATIENT
  Age: 5 Year
  Sex: Male
  Weight: 19 kg

DRUGS (1)
  1. ELOCTA [Suspect]
     Active Substance: EFMOROCTOCOG ALFA
     Indication: HAEMORRHAGE PROPHYLAXIS
     Route: 065
     Dates: start: 20180301

REACTIONS (1)
  - Strabismus correction [Recovered/Resolved]

NARRATIVE: CASE EVENT DATE: 20180907
